FAERS Safety Report 5112881-7 (Version None)
Quarter: 2006Q3

REPORT INFORMATION
  Report Type: 
  Country: None (occurrence: None)
  Receive Date: 20060921
  Receipt Date: 20060921
  Transmission Date: 20061208
  Serious: Yes (Hospitalization)
  Sender: FDA-Public Use
  Company Number: None

PATIENT
  Age: 52 Year
  Sex: Male
  Weight: 113.6 kg

DRUGS (1)
  1. DOXYCYCLINE [Suspect]
     Indication: PSORIASIS
     Dosage: 100 MG BID PO
     Route: 048

REACTIONS (9)
  - ADVERSE DRUG REACTION [None]
  - ANGIONEUROTIC OEDEMA [None]
  - CHEST PAIN [None]
  - DERMATITIS [None]
  - DRUG HYPERSENSITIVITY [None]
  - PAIN [None]
  - PHOTOSENSITIVITY REACTION [None]
  - RASH PRURITIC [None]
  - SKIN BURNING SENSATION [None]
